FAERS Safety Report 15406206 (Version 1)
Quarter: 2018Q3

REPORT INFORMATION
  Report Type: Spontaneous
  Country: US (occurrence: US)
  Receive Date: 20180918
  Receipt Date: 20180918
  Transmission Date: 20181010
  Serious: Yes (Disabling, Other)
  Sender: FDA-Public Use
  Company Number: None

PATIENT
  Age: 70 Year
  Sex: Male
  Weight: 69.75 kg

DRUGS (1)
  1. RHOPRESSA [Suspect]
     Active Substance: NETARSUDIL MESYLATE

REACTIONS (4)
  - Vision blurred [None]
  - Photosensitivity reaction [None]
  - Headache [None]
  - Blindness unilateral [None]

NARRATIVE: CASE EVENT DATE: 20180822
